FAERS Safety Report 23553305 (Version 5)
Quarter: 2024Q2

REPORT INFORMATION
  Report Type: Report from Study
  Country: US (occurrence: US)
  Receive Date: 20240222
  Receipt Date: 20240513
  Transmission Date: 20240716
  Serious: Yes (Hospitalization)
  Sender: FDA-Public Use
  Company Number: US-ABBVIE-5647534

PATIENT
  Age: 49 Year
  Sex: Male

DRUGS (5)
  1. RINVOQ [Suspect]
     Active Substance: UPADACITINIB
     Indication: Colitis ulcerative
     Dosage: LAST ADMIN DATE 2023
     Route: 048
     Dates: start: 20231113
  2. RINVOQ [Suspect]
     Active Substance: UPADACITINIB
     Indication: Colitis ulcerative
     Dosage: FORM STRENGTH: 15 MILLIGRAM
     Route: 048
  3. RINVOQ [Suspect]
     Active Substance: UPADACITINIB
     Indication: Colitis ulcerative
     Dosage: FORM STRENGTH: 30 MILLIGRAM
     Route: 048
     Dates: start: 202401
  4. RINVOQ [Suspect]
     Active Substance: UPADACITINIB
     Indication: Colitis ulcerative
     Dosage: FORM STRENGTH: 45 MILLIGRAM
     Route: 048
     Dates: start: 202312, end: 202312
  5. RINVOQ [Suspect]
     Active Substance: UPADACITINIB
     Indication: Colitis ulcerative
     Dosage: FORM STRENGTH: 15 MILLIGRAM?LAST ADMIN DATE- 2024
     Route: 048
     Dates: start: 2024, end: 2024

REACTIONS (21)
  - Hypertension [Unknown]
  - Rectal haemorrhage [Unknown]
  - Blood cholesterol abnormal [Unknown]
  - Blood potassium decreased [Recovered/Resolved]
  - Blood cholesterol increased [Not Recovered/Not Resolved]
  - Liver disorder [Unknown]
  - Bronchitis [Recovered/Resolved]
  - COVID-19 [Recovered/Resolved]
  - Diarrhoea [Not Recovered/Not Resolved]
  - Restlessness [Unknown]
  - Conjunctivitis [Recovering/Resolving]
  - Hypotension [Recovering/Resolving]
  - Dysstasia [Unknown]
  - Dehydration [Recovered/Resolved]
  - Infusion site reaction [Unknown]
  - Incorrect route of product administration [Unknown]
  - Infusion site swelling [Unknown]
  - Drug ineffective [Not Recovered/Not Resolved]
  - SARS-CoV-2 test positive [Recovered/Resolved]
  - Colitis ulcerative [Not Recovered/Not Resolved]
  - Blood bilirubin abnormal [Unknown]

NARRATIVE: CASE EVENT DATE: 20240101
